FAERS Safety Report 5229341-5 (Version None)
Quarter: 2007Q1

REPORT INFORMATION
  Report Type: 
  Country: None (occurrence: None)
  Receive Date: 20070205
  Receipt Date: 20070202
  Transmission Date: 20070707
  Serious: Yes (Death)
  Sender: FDA-Public Use
  Company Number: JP-ALLERGAN-0700862US

PATIENT
  Sex: Male

DRUGS (17)
  1. BOTOX [Suspect]
     Indication: TORTICOLLIS
     Dosage: UNK, UNK
     Route: 030
     Dates: start: 20041201, end: 20041201
  2. BOTOX [Suspect]
     Route: 030
     Dates: start: 20050202, end: 20050202
  3. BOTOX [Suspect]
     Route: 030
     Dates: start: 20050406, end: 20050406
  4. BOTOX [Suspect]
     Route: 030
     Dates: start: 20050608, end: 20050608
  5. BOTOX [Suspect]
     Route: 030
     Dates: start: 20050824, end: 20050824
  6. BOTOX [Suspect]
     Route: 030
     Dates: start: 20051026, end: 20051026
  7. ALIMEMAZINE TARTRATE [Concomitant]
  8. SUCRALFATE [Concomitant]
  9. RIBOFLAVIN TAB [Concomitant]
  10. DIASTASE [Concomitant]
  11. DIMETICONE [Concomitant]
  12. AMLODIPINE BESYLATE [Concomitant]
  13. BENZBROMARONE [Concomitant]
  14. PROPIVERINE HYDROCHLORIDE [Concomitant]
  15. LOSARTAN POTASSIUM [Concomitant]
  16. NIZATIDINE [Concomitant]
  17. SENNOSIDE                          /00571902/ [Concomitant]

REACTIONS (1)
  - CARDIOVASCULAR DISORDER [None]
